FAERS Safety Report 10686949 (Version 1)
Quarter: 2015Q1

REPORT INFORMATION
  Report Type: Not Available
  Country: FR (occurrence: FR)
  Receive Date: 20150102
  Receipt Date: 20150102
  Transmission Date: 20150720
  Serious: Yes (Hospitalization)
  Sender: FDA-Public Use
  Company Number: FR-BEH-2014047540

PATIENT
  Age: 64 Year
  Sex: Male

DRUGS (6)
  1. PRIVIGEN [Suspect]
     Active Substance: HUMAN IMMUNOGLOBULIN G
     Indication: CHRONIC INFLAMMATORY DEMYELINATING POLYRADICULONEUROPATHY
     Dosage: 0.4 G/KG PER DAY DURING 5 DAYS  EVERY 7 WEEKS
     Route: 042
  2. IMUREL [Concomitant]
     Active Substance: AZATHIOPRINE SODIUM
     Indication: CHRONIC INFLAMMATORY DEMYELINATING POLYRADICULONEUROPATHY
     Dosage: 150 MG (3X50 MG)
     Route: 048
  3. OMEPRAZOLE. [Concomitant]
     Active Substance: OMEPRAZOLE
     Route: 048
  4. FORADIL [Concomitant]
     Active Substance: FORMOTEROL FUMARATE
     Route: 048
  5. PRIVIGEN [Suspect]
     Active Substance: HUMAN IMMUNOGLOBULIN G
     Dosage: 0.4 G/KG PER DAY DURING 5 DAYS  EVERY 7 WEEKS
     Route: 042
  6. PRIVIGEN [Suspect]
     Active Substance: HUMAN IMMUNOGLOBULIN G
     Dosage: 0.4 G/KG PER DAY DURING 5 DAYS  EVERY 7 WEEKS
     Route: 042

REACTIONS (2)
  - Jugular vein thrombosis [Not Recovered/Not Resolved]
  - Medical device site reaction [Not Recovered/Not Resolved]

NARRATIVE: CASE EVENT DATE: 20141110
